FAERS Safety Report 17404762 (Version 1)
Quarter: 2020Q1

REPORT INFORMATION
  Report Type: Spontaneous
  Country: US (occurrence: US)
  Receive Date: 20200211
  Receipt Date: 20200211
  Transmission Date: 20200409
  Serious: No
  Sender: FDA-Public Use
  Company Number: US-PURDUE-USA-2019-0148092

PATIENT
  Sex: Female

DRUGS (2)
  1. BUTRANS [Suspect]
     Active Substance: BUPRENORPHINE
     Dosage: 20 MCG/HR, WEEKLY
     Route: 062
  2. BUTRANS [Suspect]
     Active Substance: BUPRENORPHINE
     Indication: PAIN
     Dosage: 10 MG/HR, WEEKLY
     Route: 062
     Dates: start: 2013

REACTIONS (8)
  - Application site vesicles [Unknown]
  - Inadequate analgesia [Unknown]
  - Application site rash [Unknown]
  - Drug hypersensitivity [Unknown]
  - Application site discharge [Unknown]
  - Application site erosion [Unknown]
  - Application site erythema [Unknown]
  - Application site pruritus [Unknown]
